FAERS Safety Report 5740478-4 (Version None)
Quarter: 2008Q2

REPORT INFORMATION
  Report Type: 
  Country: None (occurrence: None)
  Receive Date: 20080516
  Receipt Date: 20080508
  Transmission Date: 20081010
  Serious: Yes (Hospitalization, Disabling, Other)
  Sender: FDA-Public Use
  Company Number: JP-ABBOTT-08P-087-0451119-00

PATIENT
  Age: 64 Year
  Sex: Male

DRUGS (4)
  1. CLARITH TABLETS [Suspect]
     Indication: HELICOBACTER INFECTION
     Route: 048
     Dates: start: 20071004, end: 20071010
  2. AMOXICILLIN [Suspect]
     Indication: HELICOBACTER INFECTION
     Route: 048
     Dates: start: 20071004, end: 20071010
  3. OMEPRAZOLE [Suspect]
     Indication: HELICOBACTER INFECTION
     Route: 048
     Dates: start: 20071004, end: 20071010
  4. ALUMINUM HYDROXIDE/MAGNESIUM HYDROXIDE [Concomitant]
     Indication: DUODENAL ULCER
     Route: 048
     Dates: start: 20071005

REACTIONS (5)
  - C-REACTIVE PROTEIN INCREASED [None]
  - COLITIS ULCERATIVE [None]
  - FAECES DISCOLOURED [None]
  - LIVER DISORDER [None]
  - VOMITING [None]
